FAERS Safety Report 10211027 (Version 1)
Quarter: 2014Q2

REPORT INFORMATION
  Report Type: Spontaneous
  Country: US (occurrence: None)
  Receive Date: 20140528
  Receipt Date: 20140528
  Transmission Date: 20141212
  Serious: Yes (Hospitalization)
  Sender: FDA-Public Use
  Company Number: UNT-2014-000629

PATIENT
  Sex: Female

DRUGS (3)
  1. REMODULIN [Suspect]
     Indication: PULMONARY ARTERIAL HYPERTENSION
     Dosage: CONTINUING
     Route: 041
     Dates: start: 20140411
  2. BISACODYL (BISACODYL) [Concomitant]
  3. ASPIRIN (ACETYLSALICYLIC ACID) [Suspect]

REACTIONS (2)
  - Chest pain [None]
  - Dyspnoea [None]
